FAERS Safety Report 24989940 (Version 2)
Quarter: 2025Q3

REPORT INFORMATION
  Report Type: Spontaneous
  Country: US (occurrence: US)
  Receive Date: 20250220
  Receipt Date: 20250725
  Transmission Date: 20251021
  Serious: Yes (Other)
  Sender: COOPERSURGICAL
  Company Number: US-COOPERSURGICAL, INC.-2025CPS000967

PATIENT
  Age: 42 Year
  Sex: Female
  Weight: 92.063 kg

DRUGS (1)
  1. PARAGARD T 380A [Suspect]
     Active Substance: COPPER
     Indication: Contraception
     Route: 015
     Dates: start: 20090612

REACTIONS (14)
  - Reproductive complication associated with device [Not Recovered/Not Resolved]
  - Uterine disorder [Recovered/Resolved]
  - Hysterectomy [Recovered/Resolved]
  - Pelvic inflammatory disease [Unknown]
  - Device breakage [Recovered/Resolved]
  - Foreign body in urogenital tract [Recovered/Resolved]
  - Complication of device removal [Recovered/Resolved]
  - Embedded device [Recovered/Resolved]
  - Endometriosis [Recovered/Resolved]
  - Emotional disorder [Unknown]
  - Abnormal uterine bleeding [Recovered/Resolved]
  - Device dislocation [Recovered/Resolved]
  - Unevaluable event [Unknown]
  - Pelvic pain [Unknown]

NARRATIVE: CASE EVENT DATE: 20160201
